FAERS Safety Report 9924271 (Version 1)
Quarter: 2014Q1

REPORT INFORMATION
  Report Type: Spontaneous
  Country: US (occurrence: US)
  Receive Date: 20140226
  Receipt Date: 20140226
  Transmission Date: 20141002
  Serious: Yes (Hospitalization)
  Sender: FDA-Public Use
  Company Number: US-BRISTOL-MYERS SQUIBB COMPANY-20229001

PATIENT
  Age: 75 Year
  Sex: Female
  Weight: 65.76 kg

DRUGS (5)
  1. ELIQUIS [Suspect]
     Indication: ATRIAL FIBRILLATION
  2. BABY ASPIRIN [Concomitant]
  3. ATENOLOL [Concomitant]
  4. FAMOTIDINE [Concomitant]
  5. VITAMIN C [Concomitant]

REACTIONS (2)
  - Cardiac disorder [Unknown]
  - Urinary tract infection [Unknown]
